FAERS Safety Report 9580232 (Version 1)
Quarter: 2013Q4

REPORT INFORMATION
  Report Type: Spontaneous
  Country: US (occurrence: US)
  Receive Date: 20131002
  Receipt Date: 20131002
  Transmission Date: 20140711
  Serious: No
  Sender: FDA-Public Use
  Company Number: US-FOUGERA-2013FO000078

PATIENT
  Age: 72 Year
  Sex: Female

DRUGS (1)
  1. BETAMETHASONE DIPROPIONATE [Suspect]
     Indication: ECZEMA
     Route: 061
     Dates: start: 201302, end: 20130218

REACTIONS (1)
  - Rash [Recovered/Resolved]
